FAERS Safety Report 21907439 (Version 1)
Quarter: 2023Q1

REPORT INFORMATION
  Report Type: Spontaneous
  Country: US (occurrence: None)
  Receive Date: 20230125
  Receipt Date: 20230125
  Transmission Date: 20230417
  Serious: No
  Sender: FDA-Public Use
  Company Number: 2023A018693

PATIENT
  Age: 950 Month
  Sex: Male
  Weight: 104.3 kg

DRUGS (1)
  1. SYMBICORT [Suspect]
     Active Substance: BUDESONIDE\FORMOTEROL FUMARATE DIHYDRATE
     Indication: Chronic obstructive pulmonary disease
     Route: 055

REACTIONS (5)
  - Wrong technique in product usage process [Unknown]
  - Incorrect dose administered by product [Unknown]
  - Device use issue [Unknown]
  - Weight increased [Not Recovered/Not Resolved]
  - Device use confusion [Unknown]

NARRATIVE: CASE EVENT DATE: 20221101
